FAERS Safety Report 21241537 (Version 3)
Quarter: 2023Q2

REPORT INFORMATION
  Report Type: Report from Study
  Country: CY (occurrence: CY)
  Receive Date: 20220823
  Receipt Date: 20230505
  Transmission Date: 20230722
  Serious: Yes (Other)
  Sender: FDA-Public Use
  Company Number: CY-ROCHE-2682855

PATIENT
  Age: 68 Year
  Sex: Female
  Weight: 64 kg

DRUGS (21)
  1. CAPECITABINE [Suspect]
     Active Substance: CAPECITABINE
     Indication: HER2 positive breast cancer
     Dosage: DATE OF MOST RECENT DOSE: 08/APR/2021
     Dates: start: 20180704
  2. PACLITAXEL [Suspect]
     Active Substance: PACLITAXEL
     Indication: HER2 positive breast cancer
     Dosage: MOST RECENT DOSE PRIOR TO EVENT 11/JAN/2017
     Dates: start: 20160823
  3. LETROZOLE [Suspect]
     Active Substance: LETROZOLE
     Indication: HER2 positive breast cancer
     Dosage: MOST RECENT DOSE OF LETROZOLE WAS ON 04/JUL/2018
     Dates: start: 20170201
  4. LAPATINIB [Suspect]
     Active Substance: LAPATINIB
     Indication: HER2 positive breast cancer
     Dosage: MOST RECENT DOSE ON 08/APR/2021
     Dates: start: 20180727
  5. ADO-TRASTUZUMAB EMTANSINE [Suspect]
     Active Substance: ADO-TRASTUZUMAB EMTANSINE
     Indication: HER2 positive breast cancer
     Dates: start: 20210422
  6. TRASTUZUMAB [Suspect]
     Active Substance: TRASTUZUMAB
     Indication: HER2 positive breast cancer
     Dosage: DATE OF MOST RECENT DOSE: 04/JUL/2018
     Dates: start: 20160830
  7. GLUCOPHAGE [Concomitant]
     Active Substance: METFORMIN HYDROCHLORIDE
     Indication: Product used for unknown indication
     Dosage: ONGOING = CHECKED
     Dates: start: 20141215
  8. LEVOTHYROXINE [Concomitant]
     Active Substance: LEVOTHYROXINE
     Indication: Product used for unknown indication
     Dates: start: 20141215
  9. ZOLEDRONIC ACID [Concomitant]
     Active Substance: ZOLEDRONIC ACID
     Indication: Product used for unknown indication
     Dosage: ONGOING = CHECKED
     Dates: start: 20160913, end: 20181212
  10. FUSICORT [Concomitant]
     Indication: Paronychia
     Dosage: ONGOING = CHECKED
     Dates: start: 20210806, end: 20211118
  11. FUSICORT [Concomitant]
     Dosage: ONGOING = CHECKED
     Dates: start: 20211210, end: 20220511
  12. BISOPROLOL FUMARATE [Concomitant]
     Active Substance: BISOPROLOL FUMARATE
     Indication: Product used for unknown indication
     Dates: start: 20141215
  13. RAMIPRIL [Concomitant]
     Active Substance: RAMIPRIL
     Indication: Product used for unknown indication
     Dosage: ONGOING = NOT CHECKED
     Dates: start: 20141215, end: 20180827
  14. AMLODIPINE [Concomitant]
     Active Substance: AMLODIPINE BESYLATE
     Indication: Product used for unknown indication
     Dates: start: 20141215
  15. DENOSUMAB [Concomitant]
     Active Substance: DENOSUMAB
     Indication: Product used for unknown indication
     Dosage: ONGOING = CHECKED
     Dates: start: 20190207
  16. FUSIDIC ACID [Concomitant]
     Active Substance: FUSIDIC ACID
     Indication: Paronychia
     Dosage: ONGOING = CHECKED
     Dates: start: 20191206, end: 20211018
  17. BEPANTHOL [Concomitant]
     Indication: Product used for unknown indication
     Dosage: ONGOING = CHECKED
     Dates: start: 20190525
  18. PFIZER-BIONTECH COVID-19 VACCINE [Concomitant]
     Active Substance: TOZINAMERAN
     Indication: Product used for unknown indication
     Dates: start: 20210720, end: 20210720
  19. CLORAMBUCILE [Concomitant]
     Indication: Product used for unknown indication
     Dates: start: 20161101, end: 20170429
  20. COMIRNATY [Concomitant]
     Active Substance: TOZINAMERAN
     Indication: Product used for unknown indication
     Dates: start: 20210720, end: 20210720
  21. DEXPANTHENOL [Concomitant]
     Active Substance: DEXPANTHENOL
     Indication: Product used for unknown indication
     Dates: start: 20190525

REACTIONS (23)
  - Neuropathy peripheral [Recovered/Resolved]
  - Fatigue [Recovered/Resolved]
  - Cough [Recovered/Resolved]
  - Rash [Recovered/Resolved]
  - Vertigo [Recovered/Resolved]
  - Rash [Recovered/Resolved]
  - Paronychia [Recovered/Resolved]
  - Anxiety [Not Recovered/Not Resolved]
  - Paronychia [Recovered/Resolved]
  - Diarrhoea [Recovered/Resolved]
  - Palmar-plantar erythrodysaesthesia syndrome [Recovered/Resolved]
  - Nausea [Recovered/Resolved]
  - Fatigue [Recovered/Resolved]
  - Fatigue [Recovered/Resolved]
  - Influenza like illness [Recovered/Resolved]
  - Cough [Recovered/Resolved]
  - Onychomadesis [Recovered/Resolved]
  - Arthralgia [Recovered/Resolved]
  - Hypersensitivity [Recovered/Resolved]
  - Fatigue [Recovered/Resolved]
  - Arthralgia [Recovered/Resolved]
  - Dry skin [Recovered/Resolved]
  - Fatigue [Recovered/Resolved]

NARRATIVE: CASE EVENT DATE: 20170104
